FAERS Safety Report 18988583 (Version 4)
Quarter: 2021Q2

REPORT INFORMATION
  Report Type: Spontaneous
  Country: US (occurrence: US)
  Receive Date: 20210309
  Receipt Date: 20210607
  Transmission Date: 20210717
  Serious: Yes (Other)
  Sender: FDA-Public Use
  Company Number: US-PFIZER INC-2021233772

PATIENT
  Age: 55 Year
  Sex: Female
  Weight: 74.83 kg

DRUGS (1)
  1. GEODON [Suspect]
     Active Substance: ZIPRASIDONE HYDROCHLORIDE\ZIPRASIDONE MESYLATE
     Dosage: UNK

REACTIONS (7)
  - Personality disorder [Unknown]
  - Memory impairment [Not Recovered/Not Resolved]
  - Illness [Unknown]
  - Mental disability [Not Recovered/Not Resolved]
  - Head injury [Unknown]
  - Suicidal ideation [Not Recovered/Not Resolved]
  - Acute kidney injury [Unknown]
